FAERS Safety Report 7573677-X (Version None)
Quarter: 2011Q2

REPORT INFORMATION
  Report Type: 
  Country: None (occurrence: None)
  Receive Date: 20110627
  Receipt Date: 20100815
  Transmission Date: 20111010
  Serious: Yes (Death)
  Sender: FDA-Public Use
  Company Number: IL-ROCHE-777073

PATIENT
  Age: 61 Year
  Sex: Female
  Weight: 69 kg

DRUGS (11)
  1. BEVACIZUMAB [Suspect]
     Dosage: FREQUENCY: 2X2 WEEKS
     Route: 065
     Dates: start: 20051101, end: 20060521
  2. FLUOROURACIL [Concomitant]
     Dates: start: 20041103, end: 20050526
  3. BEVACIZUMAB [Suspect]
     Dosage: EVERY 2 WEEKS
     Route: 065
  4. FLUOROURACIL [Concomitant]
     Dosage: DOSE: 500 MG/ME2 FREQUENCY: 2X2 WEEKS
     Dates: start: 20051101, end: 20060526
  5. IRINOTECAN HYDROCHLORIDE [Concomitant]
     Dosage: DOSE: 125 MG/ME2, 2X2 WEEKS
     Dates: start: 20051101, end: 20060526
  6. LEUCOVORIN CALCIUM [Concomitant]
     Dosage: EVERY 2 WEEKS
     Dates: start: 20041103, end: 20050526
  7. LEUCOVORIN CALCIUM [Concomitant]
     Dosage: DAY 1 AND DAY 14 EVERY 3 WEEKS
     Dates: start: 20080110, end: 20080131
  8. TEGAFUR/URACIL [Concomitant]
     Dosage: DAY 1 AND DAY 14 EVERY 3 WEEKS
     Dates: start: 20080110, end: 20080131
  9. LEUCOVORIN CALCIUM [Concomitant]
     Dosage: DOSE: 20 MG/ME2 FREQUENCY: 2X2 WEEKS
     Dates: start: 20051101, end: 20060526
  10. OXALIPLATIN [Concomitant]
     Dosage: DOSE: 130 MG/ME2, FREQUENCY: EVERY 3 WEEKS
     Dates: start: 20080110, end: 20080131
  11. IRINOTECAN HYDROCHLORIDE [Concomitant]
     Dosage: FREQUENCY: EVERY 2 WEEKS
     Dates: start: 20041103, end: 20050526

REACTIONS (3)
  - DIARRHOEA [None]
  - STOMATITIS [None]
  - PYREXIA [None]
